FAERS Safety Report 7939120-3 (Version None)
Quarter: 2011Q4

REPORT INFORMATION
  Report Type: 
  Country: None (occurrence: None)
  Receive Date: 20111124
  Receipt Date: 20111115
  Transmission Date: 20120403
  Serious: Yes (Hospitalization)
  Sender: FDA-Public Use
  Company Number: US-ROCHE-1014216

PATIENT
  Age: 40 Year
  Sex: Female
  Weight: 108.63 kg

DRUGS (9)
  1. PACLITAXEL [Suspect]
     Indication: ADENOCARCINOMA OF THE CERVIX
     Dosage: 175 MG/M2 OVER 3 HRS ON DAY 1
     Route: 042
     Dates: start: 20111012
  2. FENTANYL CITRATE [Suspect]
     Indication: PRODUCT USED FOR UNKNOWN INDICATION
  3. CISPLATIN [Suspect]
     Indication: ADENOCARCINOMA OF THE CERVIX
     Dosage: 50 MG/M2 ON DAY1
     Route: 042
     Dates: start: 20111012
  4. PANTOPRAZOLE SODIUM [Suspect]
     Indication: PRODUCT USED FOR UNKNOWN INDICATION
  5. DICYCLOMINE HYDROCHLORIDE [Suspect]
     Indication: PRODUCT USED FOR UNKNOWN INDICATION
  6. MACROBID [Concomitant]
  7. CAFFEINE AND BUTALBITAL AND PARACETAMOL [Suspect]
     Indication: PRODUCT USED FOR UNKNOWN INDICATION
  8. ZOLOFT [Concomitant]
  9. AVASTIN [Suspect]
     Indication: ADENOCARCINOMA OF THE CERVIX
     Dosage: 15 MG/KG OVER 30-90 MIN ON DAY 1
     Route: 042
     Dates: start: 20111012

REACTIONS (3)
  - ABDOMINAL PAIN [None]
  - COLONIC OBSTRUCTION [None]
  - HYPERTENSION [None]
